FAERS Safety Report 7371687-9 (Version None)
Quarter: 2011Q1

REPORT INFORMATION
  Report Type: 
  Country: None (occurrence: None)
  Receive Date: 20110324
  Receipt Date: 20110316
  Transmission Date: 20110831
  Serious: Yes (Death, Life-Threatening, Hospitalization)
  Sender: FDA-Public Use
  Company Number: TH-NOVOPROD-317817

PATIENT
  Age: 8 Year
  Sex: Male
  Weight: 16 kg

DRUGS (19)
  1. DEXAMETHASONE [Concomitant]
     Dosage: 3.5 MG, TID
     Dates: start: 20100615, end: 20100621
  2. MIDAZOLAM [Concomitant]
     Dosage: UNK
     Dates: start: 20100615, end: 20100615
  3. FENTANYL [Concomitant]
     Dosage: UNK
     Dates: start: 20100616, end: 20100616
  4. NOVOSEVEN [Suspect]
     Indication: FACTOR VII DEFICIENCY
     Dosage: 400 UG, QID
     Dates: start: 20100615, end: 20100616
  5. NOVOSEVEN [Suspect]
     Dosage: 200 UG, QID
     Dates: start: 20100620, end: 20100621
  6. CEFAZOLIN [Concomitant]
     Dosage: 570 MG, TID
     Route: 042
     Dates: start: 20100616, end: 20100618
  7. PARACETAMOL [Concomitant]
     Dosage: UNK
     Dates: start: 20100615, end: 20100621
  8. FUROSEMIDE [Concomitant]
     Dosage: UNK
     Dates: start: 20100615, end: 20100628
  9. DIAZEPAM [Concomitant]
     Dosage: UNK
     Dates: start: 20100615, end: 20100615
  10. OMEPRAZOLE [Concomitant]
     Dosage: UNK
     Dates: start: 20100615, end: 20100620
  11. PHENYTOIN [Concomitant]
     Dosage: UNK
     Dates: start: 20100615, end: 20100621
  12. MORPHINE [Concomitant]
     Dosage: UNK
     Dates: start: 20100616, end: 20100617
  13. FRESH FROZEN PLASMA [Concomitant]
     Dosage: 10,0 ML/KG
     Dates: start: 20100627
  14. MIDAZOLAM [Concomitant]
     Dosage: UNK
     Dates: start: 20100623, end: 20100623
  15. DILANTIN [Concomitant]
     Dosage: 250 MG, QD
     Route: 042
     Dates: start: 20100615, end: 20100617
  16. FERROUS SULFATE TAB [Concomitant]
     Dosage: UNK
     Dates: start: 20100615, end: 20100616
  17. NOVOSEVEN [Suspect]
     Dosage: 300 UG, QID
     Dates: start: 20100617, end: 20100619
  18. FRESH FROZEN PLASMA [Concomitant]
     Dosage: 10 ML/KG.
     Dates: start: 20100617
  19. CHLORAL HYDRATE [Suspect]
     Dosage: UNK
     Dates: start: 20100615, end: 20100615

REACTIONS (2)
  - CEREBRAL INFARCTION [None]
  - GASTROINTESTINAL HAEMORRHAGE [None]
